FAERS Safety Report 16162633 (Version 3)
Quarter: 2023Q1

REPORT INFORMATION
  Report Type: Report from Study
  Country: US (occurrence: US)
  Receive Date: 20190405
  Receipt Date: 20230214
  Transmission Date: 20230417
  Serious: Yes (Hospitalization)
  Sender: FDA-Public Use
  Company Number: US-TAKEDA-2019TUS018362

PATIENT
  Age: 54 Year
  Sex: Female

DRUGS (36)
  1. IXAZOMIB [Suspect]
     Active Substance: IXAZOMIB
     Indication: Plasma cell myeloma
     Dosage: 4 MILLIGRAM
     Route: 048
     Dates: start: 20181120
  2. IXAZOMIB [Suspect]
     Active Substance: IXAZOMIB
     Dosage: 3 MILLIGRAM
     Route: 048
     Dates: start: 20220520
  3. DARATUMUMAB [Suspect]
     Active Substance: DARATUMUMAB
     Indication: Plasma cell myeloma
     Dosage: 2160 MILLIGRAM
     Route: 042
     Dates: start: 20181119
  4. DARATUMUMAB [Suspect]
     Active Substance: DARATUMUMAB
     Dosage: 2395 MILLIGRAM
     Route: 042
     Dates: start: 20210225
  5. DARATUMUMAB [Suspect]
     Active Substance: DARATUMUMAB
     Dosage: 2096 MILLIGRAM
     Route: 042
     Dates: start: 20220818
  6. DEXAMETHASONE [Suspect]
     Active Substance: DEXAMETHASONE
     Indication: Plasma cell myeloma
     Dosage: 20 MILLIGRAM
     Route: 042
     Dates: start: 20181119, end: 20190313
  7. DEXAMETHASONE [Suspect]
     Active Substance: DEXAMETHASONE
     Indication: Plasma cell myeloma
     Dosage: 20 MILLIGRAM
     Route: 048
     Dates: start: 20181127, end: 20190502
  8. DEXAMETHASONE [Suspect]
     Active Substance: DEXAMETHASONE
     Dosage: 4 MILLIGRAM
     Route: 048
     Dates: start: 20190117
  9. BENADRYL [Concomitant]
     Active Substance: DIPHENHYDRAMINE HYDROCHLORIDE
     Indication: Rash maculo-papular
     Dosage: 50 MILLIGRAM, QD
     Route: 048
  10. ALLOPURINOL [Concomitant]
     Active Substance: ALLOPURINOL
     Indication: Gout
     Dosage: 300 MILLIGRAM, QD
     Route: 048
     Dates: end: 20190410
  11. LORTAB [Concomitant]
     Active Substance: ACETAMINOPHEN\HYDROCODONE BITARTRATE
     Indication: Back pain
     Dosage: UNK UNK, QID
     Route: 048
     Dates: start: 20100101
  12. LORTAB [Concomitant]
     Active Substance: ACETAMINOPHEN\HYDROCODONE BITARTRATE
     Indication: Pain in extremity
  13. ZOLPIDEM [Concomitant]
     Active Substance: ZOLPIDEM TARTRATE
     Indication: Insomnia
     Dosage: 10 MILLIGRAM, QD
     Route: 048
     Dates: start: 20100101, end: 20190508
  14. MAGNESIUM [Concomitant]
     Active Substance: MAGNESIUM
     Indication: Supplementation therapy
     Dosage: 200 MILLIGRAM, BID
     Route: 048
     Dates: start: 20140101
  15. GABAPENTIN [Concomitant]
     Active Substance: GABAPENTIN
     Indication: Back pain
     Dosage: 300 MILLIGRAM, TID
     Route: 048
     Dates: start: 20150801, end: 20190605
  16. NEXIUM [Concomitant]
     Active Substance: ESOMEPRAZOLE MAGNESIUM
     Indication: Dyspepsia
     Dosage: 40 MILLIGRAM, QD
     Route: 048
     Dates: start: 20180713
  17. VITAMIN D [Concomitant]
     Active Substance: VITAMIN D NOS
     Indication: Supplementation therapy
     Dosage: UNK
     Route: 048
     Dates: start: 20181030, end: 20200401
  18. DULOXETINE [Concomitant]
     Active Substance: DULOXETINE
     Indication: Hot flush
     Dosage: 60 MILLIGRAM, QD
     Route: 048
     Dates: start: 20181012, end: 20200312
  19. EUFLEXXA [Concomitant]
     Active Substance: HYALURONATE SODIUM
     Indication: Osteoarthritis
     Dosage: 2 MILLILITER, 3/WEEK
     Route: 058
     Dates: start: 20181022, end: 20190501
  20. IMODIUM [Concomitant]
     Active Substance: LOPERAMIDE HYDROCHLORIDE
     Indication: Diarrhoea
     Dosage: 4 MILLIGRAM
     Route: 048
     Dates: start: 20181127
  21. ONDANSETRON [Concomitant]
     Active Substance: ONDANSETRON
     Indication: Nausea
     Dosage: 8 MILLIGRAM
     Route: 048
     Dates: start: 20181205
  22. PROMETHAZINE HYDROCHLORIDE [Concomitant]
     Active Substance: PROMETHAZINE HYDROCHLORIDE
     Indication: Migraine
     Dosage: 25 MILLIGRAM
     Route: 048
     Dates: start: 20120101
  23. IBUPROFEN [Concomitant]
     Active Substance: IBUPROFEN
     Indication: Back pain
     Dosage: 200 MILLIGRAM
     Route: 048
     Dates: start: 20190103
  24. IBUPROFEN [Concomitant]
     Active Substance: IBUPROFEN
     Indication: Pain in extremity
  25. DICLOFENAC SODIUM [Concomitant]
     Active Substance: DICLOFENAC SODIUM
     Indication: Osteoarthritis
     Dosage: UNK
     Route: 061
     Dates: start: 20190103, end: 20200101
  26. LIDOCAINE [Concomitant]
     Active Substance: LIDOCAINE
     Indication: Discomfort
     Dosage: UNK
     Route: 061
     Dates: start: 20190101
  27. LIDOCAINE [Concomitant]
     Active Substance: LIDOCAINE
     Indication: Prophylaxis
  28. TIZANIDINE [Concomitant]
     Active Substance: TIZANIDINE
     Indication: Myalgia
     Dosage: 4 MILLIGRAM
     Route: 048
     Dates: start: 20190201, end: 20190213
  29. LORAZEPAM [Concomitant]
     Active Substance: LORAZEPAM
     Indication: Anxiety
     Dosage: 5 MILLIGRAM
     Route: 048
     Dates: start: 20190307, end: 20200101
  30. LORAZEPAM [Concomitant]
     Active Substance: LORAZEPAM
     Indication: Chest discomfort
  31. ALBUTEROL SULFATE [Concomitant]
     Active Substance: ALBUTEROL SULFATE
     Indication: Dyspnoea
     Dosage: UNK
     Route: 045
     Dates: start: 20190124
  32. HYDROMORPHONE [Concomitant]
     Active Substance: HYDROMORPHONE
     Indication: Back pain
     Dosage: 4 MILLIGRAM
     Route: 048
     Dates: start: 20190208, end: 20190308
  33. HYDROMORPHONE [Concomitant]
     Active Substance: HYDROMORPHONE
     Indication: Pain in extremity
  34. VOLTAREN [Concomitant]
     Active Substance: DICLOFENAC SODIUM
     Indication: Osteoarthritis
     Dosage: 4 MILLIGRAM
     Route: 061
     Dates: start: 20170101, end: 20181227
  35. LIDODERM [Concomitant]
     Active Substance: LIDOCAINE
     Indication: Back pain
     Dosage: 700 MILLIGRAM
     Route: 062
     Dates: start: 20181124
  36. DIPHENHYDRAMINE [Concomitant]
     Active Substance: DIPHENHYDRAMINE
     Indication: Premedication
     Dosage: 50 MILLIGRAM
     Route: 048
     Dates: start: 20181118

REACTIONS (1)
  - Bronchitis [Recovered/Resolved]

NARRATIVE: CASE EVENT DATE: 20190327
